FAERS Safety Report 12157802 (Version 1)
Quarter: 2016Q1

REPORT INFORMATION
  Report Type: Spontaneous
  Country: US (occurrence: US)
  Receive Date: 20160308
  Receipt Date: 20160308
  Transmission Date: 20160526
  Serious: Yes (Other)
  Sender: FDA-Public Use
  Company Number: US-JNJFOC-20160202064

PATIENT

DRUGS (2)
  1. YONDELIS [Suspect]
     Active Substance: TRABECTEDIN
     Indication: LIPOSARCOMA METASTATIC
     Route: 065
  2. YONDELIS [Suspect]
     Active Substance: TRABECTEDIN
     Indication: LIPOSARCOMA METASTATIC
     Dosage: CYCLE 15
     Route: 065

REACTIONS (3)
  - Blood alkaline phosphatase abnormal [Recovered/Resolved]
  - Neutropenia [Recovered/Resolved]
  - Fatigue [Recovered/Resolved]
